FAERS Safety Report 7731135-3 (Version None)
Quarter: 2011Q3

REPORT INFORMATION
  Report Type: 
  Country: None (occurrence: None)
  Receive Date: 20110906
  Receipt Date: 20110906
  Transmission Date: 20111222
  Serious: Yes (Hospitalization, Other)
  Sender: FDA-Public Use
  Company Number: None

PATIENT
  Age: 44 Year
  Sex: Female
  Weight: 34.019 kg

DRUGS (2)
  1. VISTERIL [Concomitant]
     Indication: ANXIETY DISORDER
     Dosage: TID
     Route: 048
     Dates: start: 20110717, end: 20110903
  2. REMERON [Suspect]
     Indication: MAJOR DEPRESSION
     Dosage: TID
     Route: 048
     Dates: start: 20110717, end: 20110903

REACTIONS (20)
  - NASAL DISCOMFORT [None]
  - MIGRAINE [None]
  - PYREXIA [None]
  - PRURITUS [None]
  - DYSPNOEA [None]
  - RASH [None]
  - CHROMATURIA [None]
  - OROPHARYNGEAL PAIN [None]
  - RESTLESSNESS [None]
  - VISION BLURRED [None]
  - WEIGHT INCREASED [None]
  - SPEECH DISORDER [None]
  - CONVULSION [None]
  - ANXIETY [None]
  - TINNITUS [None]
  - ABDOMINAL PAIN [None]
  - VISUAL IMPAIRMENT [None]
  - TREMOR [None]
  - HEART RATE INCREASED [None]
  - BLOOD PRESSURE INCREASED [None]
